FAERS Safety Report 21678439 (Version 1)
Quarter: 2022Q4

REPORT INFORMATION
  Report Type: Report from Study
  Country: CA (occurrence: CA)
  Receive Date: 20221203
  Receipt Date: 20221203
  Transmission Date: 20230113
  Serious: Yes (Death, Hospitalization, Other)
  Sender: FDA-Public Use
  Company Number: CA-TEVA-2022-CA-2070856

PATIENT
  Age: 77 Year
  Sex: Male
  Weight: 68 kg

DRUGS (18)
  1. CINQAIR [Suspect]
     Active Substance: RESLIZUMAB
     Indication: Asthma
     Dosage: LAST INFUSION DATE: 31-AUG-2022
     Route: 042
     Dates: start: 20191105, end: 2022
  2. CINQAIR [Suspect]
     Active Substance: RESLIZUMAB
     Dosage: LAST INFUSION DATE: 31-AUG-2022
     Route: 042
     Dates: start: 20190621, end: 2022
  3. CINQAIR [Suspect]
     Active Substance: RESLIZUMAB
     Dosage: LAST INFUSION DATE: 31-AUG-2022
     Route: 042
     Dates: start: 20190621, end: 2022
  4. CINQAIR [Suspect]
     Active Substance: RESLIZUMAB
     Dosage: LAST INFUSION 19-JUL-2021
     Route: 042
     Dates: start: 20190621, end: 2022
  5. CINQAIR [Suspect]
     Active Substance: RESLIZUMAB
     Dosage: RECENT
     Route: 042
     Dates: start: 20190621, end: 2022
  6. SPIRIVA [Concomitant]
     Active Substance: TIOTROPIUM BROMIDE MONOHYDRATE
     Indication: Product used for unknown indication
     Dosage: ONGOING
     Route: 065
  7. Ventodisk [Concomitant]
     Indication: Product used for unknown indication
     Dosage: ONGOING
     Route: 065
  8. RAMIPRIL [Concomitant]
     Active Substance: RAMIPRIL
     Indication: Product used for unknown indication
     Dosage: ONGOING
     Route: 065
  9. Pantaloc [Concomitant]
     Indication: Product used for unknown indication
     Dosage: ONGOING
     Route: 065
  10. DILTIAZEM [Concomitant]
     Active Substance: DILTIAZEM
     Indication: Product used for unknown indication
     Dosage: ONGOING
     Route: 065
  11. ATORVASTATIN [Concomitant]
     Active Substance: ATORVASTATIN
     Indication: Product used for unknown indication
     Dosage: ONGOING
     Route: 065
  12. WARFARIN [Concomitant]
     Active Substance: WARFARIN
     Indication: Product used for unknown indication
     Dosage: ONGOING
     Route: 065
  13. FUROSEMIDE [Concomitant]
     Active Substance: FUROSEMIDE
     Indication: Product used for unknown indication
     Dosage: ONGOING
     Route: 065
  14. TRAMADOL [Concomitant]
     Active Substance: TRAMADOL
     Indication: Product used for unknown indication
     Dosage: ONGOING
     Route: 065
  15. ZOPICLONE [Concomitant]
     Active Substance: ZOPICLONE
     Indication: Product used for unknown indication
     Dosage: ONGOING
     Route: 065
  16. SYMBICORT [Concomitant]
     Active Substance: BUDESONIDE\FORMOTEROL FUMARATE DIHYDRATE
     Indication: Product used for unknown indication
     Dosage: ONGOING, 2 PUFFS
     Route: 065
  17. SINGULAIR [Concomitant]
     Active Substance: MONTELUKAST SODIUM
     Indication: Product used for unknown indication
     Dosage: ONGOING
     Route: 065
  18. PHENERGAN [Concomitant]
     Active Substance: PROMETHAZINE HYDROCHLORIDE
     Indication: Product used for unknown indication

REACTIONS (13)
  - Hepatic cancer [Fatal]
  - Malignant neoplasm progression [Not Recovered/Not Resolved]
  - Asthenia [Not Recovered/Not Resolved]
  - Fall [Not Recovered/Not Resolved]
  - Atrial fibrillation [Unknown]
  - Cholecystectomy [Unknown]
  - Heart rate decreased [Unknown]
  - Blood pressure diastolic decreased [Unknown]
  - Poor venous access [Recovered/Resolved]
  - Weight fluctuation [Unknown]
  - Inappropriate schedule of product administration [Unknown]
  - Incorrect dose administered [Unknown]
  - Hypertension [Recovering/Resolving]

NARRATIVE: CASE EVENT DATE: 20200831
